FAERS Safety Report 5204118-5 (Version None)
Quarter: 2007Q1

REPORT INFORMATION
  Report Type: 
  Country: None (occurrence: None)
  Receive Date: 20070110
  Receipt Date: 20051130
  Transmission Date: 20070707
  Serious: No
  Sender: FDA-Public Use
  Company Number: US-BRISTOL-MYERS SQUIBB COMPANY-13200092

PATIENT
  Sex: Female
  Weight: 83 kg

DRUGS (7)
  1. ABILIFY [Suspect]
     Indication: MENTAL DISORDER
     Route: 048
  2. LISINOPRIL [Concomitant]
  3. FUROSEMIDE [Concomitant]
  4. METOPROLOL SUCCINATE [Concomitant]
  5. AVANDIA [Concomitant]
  6. PREMARIN [Concomitant]
  7. MEDROXYPROGESTERONE [Concomitant]

REACTIONS (1)
  - WEIGHT INCREASED [None]
